FAERS Safety Report 7656764-7 (Version None)
Quarter: 2011Q3

REPORT INFORMATION
  Report Type: 
  Country: None (occurrence: None)
  Receive Date: 20110801
  Receipt Date: 20110714
  Transmission Date: 20111222
  Serious: Yes (Hospitalization, Congenital Anomaly)
  Sender: FDA-Public Use
  Company Number: 2011MA008893

PATIENT
  Age: 1 Day
  Sex: Female

DRUGS (2)
  1. FERROUS SULFATE TAB [Concomitant]
  2. PROPYLTHIOURACIL [Suspect]
     Indication: MATERNAL EXPOSURE DURING PREGNANCY
     Dosage: 50 MG, TID;

REACTIONS (10)
  - PLEURAL EFFUSION [None]
  - RIGHT ATRIAL DILATATION [None]
  - DILATATION VENTRICULAR [None]
  - CARDIOMEGALY [None]
  - CAESAREAN SECTION [None]
  - FOETAL HEART RATE INCREASED [None]
  - MATERNAL DRUGS AFFECTING FOETUS [None]
  - NEONATAL RESPIRATORY DISTRESS SYNDROME [None]
  - CONGENITAL HYPOTHYROIDISM [None]
  - CONGENITAL PULMONARY HYPERTENSION [None]
